FAERS Safety Report 7517074-1 (Version None)
Quarter: 2011Q2

REPORT INFORMATION
  Report Type: 
  Country: None (occurrence: None)
  Receive Date: 20110503
  Receipt Date: 20100409
  Transmission Date: 20111010
  Serious: Yes (Hospitalization)
  Sender: FDA-Public Use
  Company Number: KV201000052

PATIENT
  Age: 77 Year
  Sex: Female

DRUGS (17)
  1. LOPRESSOR [Concomitant]
  2. GLUCOPHAGE [Concomitant]
  3. HYDROCHLOROTHIAZIDE [Concomitant]
  4. PRAVACHOL [Concomitant]
  5. AMARYL [Concomitant]
  6. ZOLOFT [Concomitant]
  7. ISOSORBIDE MONONITRATE [Suspect]
     Indication: PRODUCT USED FOR UNKNOWN INDICATION
     Dosage: 30 MG, QD, ORAL
     Route: 048
  8. VYTORIN [Concomitant]
  9. JANUVIA [Concomitant]
  10. AMBIEN [Concomitant]
  11. ASPIRIN [Concomitant]
  12. LOVASTATIN [Concomitant]
  13. LYRICA [Concomitant]
  14. NEXIUM [Concomitant]
  15. GLIMEPIRIDE [Concomitant]
  16. PLAVIX [Concomitant]
  17. TYLENOL /00020001/ (PARACETAMOL) [Concomitant]

REACTIONS (18)
  - DYSURIA [None]
  - PYREXIA [None]
  - NAUSEA [None]
  - DYSPNOEA EXERTIONAL [None]
  - OEDEMA [None]
  - RENAL FAILURE [None]
  - CHEST DISCOMFORT [None]
  - COLD SWEAT [None]
  - VOMITING [None]
  - MUSCULOSKELETAL PAIN [None]
  - ABDOMINAL PAIN [None]
  - DIARRHOEA [None]
  - PALPITATIONS [None]
  - HYPERHIDROSIS [None]
  - DEHYDRATION [None]
  - ANAEMIA [None]
  - ASTHENIA [None]
  - POLLAKIURIA [None]
